FAERS Safety Report 23686705 (Version 1)
Quarter: 2024Q1

REPORT INFORMATION
  Report Type: Spontaneous
  Country: US (occurrence: US)
  Receive Date: 20240329
  Receipt Date: 20240329
  Transmission Date: 20240409
  Serious: Yes (Hospitalization)
  Sender: FDA-Public Use
  Company Number: US-MYLANLABS-2024M1028607

PATIENT
  Sex: Male

DRUGS (4)
  1. FENOFIBRATE [Suspect]
     Active Substance: FENOFIBRATE
     Indication: Familial partial lipodystrophy
     Dosage: UNK
     Route: 065
  2. LEPTIN HUMAN [Suspect]
     Active Substance: LEPTIN HUMAN
     Indication: Familial partial lipodystrophy
     Dosage: UNK
     Route: 065
  3. OMEGA-3 ACIDS [Suspect]
     Active Substance: OMEGA-3 FATTY ACIDS
     Indication: Familial partial lipodystrophy
     Dosage: UNK
     Route: 065
  4. NIACIN [Suspect]
     Active Substance: NIACIN
     Indication: Familial partial lipodystrophy
     Dosage: UNK
     Route: 065

REACTIONS (2)
  - Drug ineffective for unapproved indication [Unknown]
  - Off label use [Unknown]
